FAERS Safety Report 18366475 (Version 1)
Quarter: 2020Q4

REPORT INFORMATION
  Report Type: Spontaneous
  Country: FR (occurrence: FR)
  Receive Date: 20201009
  Receipt Date: 20201009
  Transmission Date: 20210114
  Serious: Yes (Other)
  Sender: FDA-Public Use
  Company Number: FR-PFIZER INC-2020386267

PATIENT
  Sex: Female
  Weight: 70 kg

DRUGS (4)
  1. RITALINE [Suspect]
     Active Substance: METHYLPHENIDATE HYDROCHLORIDE
     Indication: SOMNOLENCE
     Dosage: 10 MG, 1X/DAY
     Route: 048
     Dates: start: 2017
  2. EFFEXOR [Suspect]
     Active Substance: VENLAFAXINE HYDROCHLORIDE
     Indication: CATAPLEXY
     Dosage: 75 MG, 1X/DAY
     Route: 048
     Dates: start: 2018
  3. XYREM [Suspect]
     Active Substance: SODIUM OXYBATE
     Indication: NARCOLEPSY
     Dosage: 9000 MG, 1X/DAY, 9G/J
     Route: 048
     Dates: start: 20171020
  4. CONCERTA LP [Concomitant]
     Active Substance: METHYLPHENIDATE HYDROCHLORIDE
     Indication: SOMNOLENCE
     Dosage: 36 MG
     Route: 048
     Dates: start: 2019

REACTIONS (4)
  - Product use in unapproved indication [Unknown]
  - Sleep disorder [Unknown]
  - Off label use [Unknown]
  - Libido decreased [Unknown]

NARRATIVE: CASE EVENT DATE: 2018
